FAERS Safety Report 6538646-7 (Version None)
Quarter: 2010Q1

REPORT INFORMATION
  Report Type: 
  Country: None (occurrence: None)
  Receive Date: 20100115
  Receipt Date: 20100107
  Transmission Date: 20100710
  Serious: Yes (Hospitalization)
  Sender: FDA-Public Use
  Company Number: US-BIOGENIDEC-2009BI041111

PATIENT
  Age: 58 Year
  Sex: Female

DRUGS (1)
  1. TYSABRI [Suspect]
     Indication: MULTIPLE SCLEROSIS
     Route: 042
     Dates: start: 20071023

REACTIONS (5)
  - ANGIOPATHY [None]
  - APPARENT DEATH [None]
  - GALLBLADDER OPERATION [None]
  - INFECTION [None]
  - STENT PLACEMENT [None]
